FAERS Safety Report 7829231-5 (Version None)
Quarter: 2011Q4

REPORT INFORMATION
  Report Type: 
  Country: None (occurrence: None)
  Receive Date: 20111020
  Receipt Date: 20111010
  Transmission Date: 20120403
  Serious: Yes (Hospitalization, Other)
  Sender: FDA-Public Use
  Company Number: NL-BAXTER-2011BH031879

PATIENT
  Age: 68 Year
  Sex: Female

DRUGS (5)
  1. LASIX [Concomitant]
     Indication: PRODUCT USED FOR UNKNOWN INDICATION
     Dosage: IV 120MG
     Route: 042
  2. GAMMAGARD S/D [Suspect]
     Dosage: 1 X PER 21 DAGEN
     Route: 042
     Dates: start: 20110829, end: 20110919
  3. GAMMAGARD S/D [Suspect]
     Dosage: 1 X PER 21 DAGEN
     Route: 042
     Dates: start: 20110829, end: 20110919
  4. GAMMAGARD S/D [Suspect]
     Indication: MYOSITIS
     Dosage: 1 X PER 21 DAGEN
     Route: 042
     Dates: start: 20090306, end: 20090306
  5. GAMMAGARD S/D [Suspect]
     Indication: OFF LABEL USE
     Dosage: 1 X PER 21 DAGEN
     Route: 042
     Dates: start: 20090306, end: 20090306

REACTIONS (7)
  - HYPOTENSION [None]
  - NAUSEA [None]
  - WEIGHT INCREASED [None]
  - MALAISE [None]
  - DIZZINESS [None]
  - COUGH [None]
  - CARDIAC FAILURE [None]
